FAERS Safety Report 4752071-0 (Version None)
Quarter: 2005Q3

REPORT INFORMATION
  Report Type: 
  Country: None (occurrence: None)
  Receive Date: 20050824
  Receipt Date: 20050428
  Transmission Date: 20060218
  Serious: Yes (Hospitalization)
  Sender: FDA-Public Use
  Company Number: US-MERCK-0505USA00240

PATIENT
  Age: 67 Year
  Sex: Female
  Weight: 100 kg

DRUGS (9)
  1. VIOXX [Suspect]
     Indication: OSTEOARTHRITIS
     Route: 048
     Dates: start: 20020101, end: 20040930
  2. COREG [Concomitant]
     Route: 065
     Dates: start: 20020101
  3. ENALAPRIL MALEATE [Concomitant]
     Route: 065
     Dates: start: 20020101
  4. LASIX [Concomitant]
     Route: 065
     Dates: start: 20020101
  5. ISOSORBIDE [Concomitant]
     Route: 065
  6. WELLBUTRIN [Concomitant]
     Route: 065
  7. DARVOCET-N 100 [Concomitant]
     Route: 065
     Dates: start: 20020101, end: 20040101
  8. FIORICET TABLETS [Concomitant]
     Route: 065
     Dates: start: 20020101
  9. ZOLOFT [Concomitant]
     Route: 065

REACTIONS (20)
  - ADVERSE EVENT [None]
  - ANGINA UNSTABLE [None]
  - BACK PAIN [None]
  - BLOOD TRIGLYCERIDES INCREASED [None]
  - CARDIAC FAILURE CONGESTIVE [None]
  - CARDIOLIPIN ANTIBODY [None]
  - CEREBROVASCULAR ACCIDENT [None]
  - CHEST PAIN [None]
  - COSTOCHONDRITIS [None]
  - DEHYDRATION [None]
  - DEPRESSION [None]
  - DIZZINESS [None]
  - DYSPNOEA [None]
  - FEELING COLD [None]
  - HAEMATURIA [None]
  - HEART RATE IRREGULAR [None]
  - HYPERHIDROSIS [None]
  - MUSCULOSKELETAL PAIN [None]
  - NAUSEA [None]
  - TRANSIENT ISCHAEMIC ATTACK [None]
